FAERS Safety Report 9244516 (Version 1)
Quarter: 2013Q1

REPORT INFORMATION
  Report Type: Spontaneous
  Country: US (occurrence: None)
  Receive Date: 20121128
  Receipt Date: 20121128
  Transmission Date: 20140127
  Serious: No
  Sender: FDA-Public Use
  Company Number: AUR-APL-2012-01400

PATIENT
  Age: 49 Year
  Sex: Female
  Weight: 113 kg

DRUGS (12)
  1. RISPERIDONE (RISPERIDONE) [Suspect]
     Indication: ANXIETY
  2. SINGULAIR [Concomitant]
  3. ACIPHEX (RABEPRAZOLE SODIUM) [Concomitant]
  4. NOVOLOG (INSULIN ASPART) [Concomitant]
  5. HUMULIN N (INSULIN INJECTION, ISOPHANE) [Concomitant]
  6. PLAVIX (CLOPIDOGREL) [Concomitant]
  7. TAMIFLU (OSELTAMIVIR) [Concomitant]
  8. PROGRAF (TACROLIMUS) [Concomitant]
  9. WELLBUTRIN (BUPROPION) [Concomitant]
  10. IMURAN (AZATHIOPRINE) [Concomitant]
  11. VALIUM (DIAZEPAM) [Concomitant]
  12. HYOSCYAMINE [Concomitant]

REACTIONS (3)
  - Irritability [None]
  - Anger [None]
  - Agitation [None]
